FAERS Safety Report 4366162-X (Version None)
Quarter: 2004Q2

REPORT INFORMATION
  Report Type: 
  Country: None (occurrence: None)
  Receive Date: 20040526
  Receipt Date: 20040526
  Transmission Date: 20050107
  Serious: Yes (Other)
  Sender: FDA-Public Use
  Company Number: None

PATIENT
  Age: 60 Year
  Sex: Male
  Weight: 100.7 kg

DRUGS (1)
  1. SILDENAFIL CITRATE [Suspect]

REACTIONS (1)
  - HEADACHE [None]
